FAERS Safety Report 6836649-6 (Version None)
Quarter: 2010Q3

REPORT INFORMATION
  Report Type: 
  Country: None (occurrence: None)
  Receive Date: 20100713
  Receipt Date: 20100701
  Transmission Date: 20110219
  Serious: Yes (Other)
  Sender: FDA-Public Use
  Company Number: BR-PFIZER INC-2010082847

PATIENT
  Age: 45 Year
  Sex: Female
  Weight: 53 kg

DRUGS (2)
  1. FRONTAL [Suspect]
     Indication: PANIC DISORDER
     Dosage: 2 TABLETS OF 1 MG, 3X/DAY
     Route: 048
     Dates: start: 20040101
  2. FRONTAL XR [Suspect]

REACTIONS (9)
  - ABDOMINAL DISCOMFORT [None]
  - DRUG EFFECT DECREASED [None]
  - DRUG INEFFECTIVE [None]
  - HEADACHE [None]
  - HYPERSENSITIVITY [None]
  - LIBIDO DISORDER [None]
  - THROAT IRRITATION [None]
  - TREMOR [None]
  - WEIGHT INCREASED [None]
